FAERS Safety Report 8017776-7 (Version None)
Quarter: 2012Q1

REPORT INFORMATION
  Report Type: 
  Country: None (occurrence: None)
  Receive Date: 20120103
  Receipt Date: 20111227
  Transmission Date: 20120608
  Serious: No
  Sender: FDA-Public Use
  Company Number: US-PFIZER INC-2011315770

PATIENT
  Sex: Female
  Weight: 64 kg

DRUGS (2)
  1. EFFEXOR XR [Interacting]
     Dosage: UNK
     Dates: start: 20111226
  2. NORVASC [Suspect]
     Indication: HYPERTENSION
     Dosage: 5 MG, 2X/DAY
     Route: 048
     Dates: start: 19950101

REACTIONS (2)
  - DRUG INTERACTION [None]
  - BLOOD PRESSURE INCREASED [None]
